FAERS Safety Report 9953186 (Version 1)
Quarter: 2014Q1

REPORT INFORMATION
  Report Type: Report from Study
  Country: US (occurrence: US)
  Receive Date: 20140304
  Receipt Date: 20140304
  Transmission Date: 20141002
  Serious: No
  Sender: FDA-Public Use
  Company Number: US-ABBVIE-13P-163-1071312-00

PATIENT
  Age: 66 Year
  Sex: Female

DRUGS (5)
  1. HUMIRA [Suspect]
     Indication: CROHN^S DISEASE
     Dates: start: 20121021
  2. AMLODIPINE [Concomitant]
     Indication: HYPERTENSION
  3. GENERIC LEVOTHYROXINE [Concomitant]
     Indication: HYPOTHYROIDISM
  4. HCTZ [Concomitant]
     Indication: HYPERTENSION
     Dosage: 37.5/25 MG
  5. GENERIC PRILOSEC [Concomitant]
     Indication: BARRETT^S OESOPHAGUS
     Dosage: 20 MG DAILY

REACTIONS (1)
  - Arthralgia [Recovering/Resolving]
